FAERS Safety Report 4970695-2 (Version None)
Quarter: 2006Q2

REPORT INFORMATION
  Report Type: 
  Country: None (occurrence: None)
  Receive Date: 20060411
  Receipt Date: 20060411
  Transmission Date: 20061013
  Serious: Yes (Other)
  Sender: FDA-Public Use
  Company Number: None

PATIENT
  Age: 18 Year
  Sex: Male

DRUGS (1)
  1. HABITROL [Suspect]
     Indication: SMOKING CESSATION THERAPY
     Dosage: 21 MG.   DAILY   CUTANEOUS
     Route: 003
     Dates: start: 20050205, end: 20050206

REACTIONS (7)
  - DIZZINESS [None]
  - DRUG TOXICITY [None]
  - HEADACHE [None]
  - HEART RATE INCREASED [None]
  - HYPERHIDROSIS [None]
  - NAUSEA [None]
  - PALPITATIONS [None]
